FAERS Safety Report 22248120 (Version 1)
Quarter: 2023Q2

REPORT INFORMATION
  Report Type: Spontaneous
  Country: US (occurrence: US)
  Receive Date: 20230425
  Receipt Date: 20230425
  Transmission Date: 20230721
  Serious: Yes (Death, Other)
  Sender: FDA-Public Use
  Company Number: US-NOVITIUMPHARMA-2023USNVP00580

PATIENT
  Age: 47 Year
  Sex: Male

DRUGS (4)
  1. ALPRAZOLAM [Suspect]
     Active Substance: ALPRAZOLAM
     Indication: Product used for unknown indication
  2. CLINDAMYCIN [Concomitant]
     Active Substance: CLINDAMYCIN
     Indication: Product used for unknown indication
  3. Para Fluorofuranylfentanyl [Concomitant]
     Indication: Product used for unknown indication
  4. Ortho fluoro 4 anilino N phenethylpiperidine [Concomitant]
     Indication: Product used for unknown indication

REACTIONS (2)
  - Drug abuse [Fatal]
  - Toxicity to various agents [Fatal]
